FAERS Safety Report 25360205 (Version 1)
Quarter: 2025Q2

REPORT INFORMATION
  Report Type: Spontaneous
  Country: US (occurrence: US)
  Receive Date: 20250527
  Receipt Date: 20250527
  Transmission Date: 20250717
  Serious: No
  Sender: ACCORD
  Company Number: US-Accord-454542

PATIENT
  Sex: Female

DRUGS (19)
  1. METHOTREXATE [Suspect]
     Active Substance: METHOTREXATE
     Indication: Product used for unknown indication
  2. ACTEMRA [Concomitant]
     Active Substance: TOCILIZUMAB
  3. SPIRONOLACTONE [Concomitant]
     Active Substance: SPIRONOLACTONE
  4. LOSARTAN [Concomitant]
     Active Substance: LOSARTAN
  5. PIOGLITAZONE [Concomitant]
     Active Substance: PIOGLITAZONE
  6. CLOPIDOGREL [Concomitant]
     Active Substance: CLOPIDOGREL BISULFATE
  7. CARVEDILOL [Concomitant]
     Active Substance: CARVEDILOL
  8. TYLENOL [Concomitant]
     Active Substance: ACETAMINOPHEN
  9. FEXOFENADINE [Concomitant]
     Active Substance: FEXOFENADINE HYDROCHLORIDE
  10. DULOXETINE [Concomitant]
     Active Substance: DULOXETINE
  11. PROBIOTICS NOS [Concomitant]
     Active Substance: PROBIOTICS NOS
  12. FISH OIL [Concomitant]
     Active Substance: FISH OIL
  13. COLLAGEN [Concomitant]
     Active Substance: COLLAGEN
  14. ALLOPURINOL [Concomitant]
     Active Substance: ALLOPURINOL
  15. ATORVASTATIN CALCIUM [Concomitant]
     Active Substance: ATORVASTATIN CALCIUM
  16. FLUTICASONE [Concomitant]
     Active Substance: FLUTICASONE
  17. LIDOCAINE [Concomitant]
     Active Substance: LIDOCAINE
  18. LANTUS [Concomitant]
     Active Substance: INSULIN GLARGINE
  19. ASPIRIN [Concomitant]
     Active Substance: ASPIRIN

REACTIONS (2)
  - Nausea [Unknown]
  - Vomiting [Unknown]
